FAERS Safety Report 24405254 (Version 2)
Quarter: 2024Q4

REPORT INFORMATION
  Report Type: Report from Study
  Country: US (occurrence: US)
  Receive Date: 20241007
  Receipt Date: 20241010
  Transmission Date: 20250115
  Serious: Yes (Other)
  Sender: ABBVIE
  Company Number: US-ABBVIE-5952460

PATIENT
  Age: 62 Year
  Sex: Male
  Weight: 73.5 kg

DRUGS (4)
  1. RINVOQ [Suspect]
     Active Substance: UPADACITINIB
     Indication: Rheumatoid arthritis
     Dosage: FORM STRENGTH:15 MILLIGRAM
     Route: 048
     Dates: start: 20230523, end: 20240525
  2. RINVOQ [Suspect]
     Active Substance: UPADACITINIB
     Indication: Rheumatoid arthritis
     Dosage: FORM STRENGTH:15 MILLIGRAM
     Route: 048
     Dates: start: 2022
  3. ATORVASTATIN [Concomitant]
     Active Substance: ATORVASTATIN
     Indication: Blood cholesterol abnormal
  4. LOSARTAN [Concomitant]
     Active Substance: LOSARTAN
     Indication: Hypertension

REACTIONS (10)
  - Deafness [Recovering/Resolving]
  - Ear pain [Recovering/Resolving]
  - Oropharyngeal blistering [Recovering/Resolving]
  - Herpes zoster [Recovering/Resolving]
  - Toothache [Recovering/Resolving]
  - Burning sensation [Recovering/Resolving]
  - Ocular discomfort [Recovering/Resolving]
  - Neuralgia [Recovering/Resolving]
  - Blister [Recovering/Resolving]
  - Oral mucosal blistering [Recovering/Resolving]

NARRATIVE: CASE EVENT DATE: 20240921
